FAERS Safety Report 9543704 (Version 2)
Quarter: 2013Q4

REPORT INFORMATION
  Report Type: Spontaneous
  Country: JP (occurrence: JP)
  Receive Date: 20130923
  Receipt Date: 20131004
  Transmission Date: 20140711
  Serious: Yes (Hospitalization)
  Sender: FDA-Public Use
  Company Number: JP-EISAI INC-E2020-12885-SPO-JP

PATIENT
  Age: 93 Year
  Sex: Male
  Weight: 59.9 kg

DRUGS (3)
  1. ARICEPT [Suspect]
     Indication: VASCULAR DEMENTIA
     Route: 048
     Dates: start: 200804, end: 20130912
  2. BAYASPIRIN [Concomitant]
     Indication: CEREBROVASCULAR DISORDER
     Route: 048
  3. MICARDIS [Concomitant]
     Indication: HYPERTENSION
     Route: 048

REACTIONS (1)
  - Cholinergic syndrome [Recovered/Resolved]
